FAERS Safety Report 12377527 (Version 2)
Quarter: 2017Q1

REPORT INFORMATION
  Report Type: Spontaneous
  Country: US (occurrence: US)
  Receive Date: 20160517
  Receipt Date: 20170314
  Transmission Date: 20170428
  Serious: No
  Sender: FDA-Public Use
  Company Number: US-JNJFOC-20150904691

PATIENT
  Age: 60 Year
  Sex: Male

DRUGS (10)
  1. METFORMIN [Concomitant]
     Active Substance: METFORMIN HYDROCHLORIDE
  2. LISINOPRIL. [Concomitant]
     Active Substance: LISINOPRIL
  3. IMBRUVICA [Suspect]
     Active Substance: IBRUTINIB
     Indication: CHRONIC LYMPHOCYTIC LEUKAEMIA
     Route: 048
     Dates: start: 20150324
  4. MELATONIN [Concomitant]
     Active Substance: MELATONIN
  5. CIALIS [Concomitant]
     Active Substance: TADALAFIL
  6. CRESTOR [Concomitant]
     Active Substance: ROSUVASTATIN CALCIUM
  7. IMBRUVICA [Suspect]
     Active Substance: IBRUTINIB
     Indication: CHRONIC LYMPHOCYTIC LEUKAEMIA
     Route: 048
     Dates: start: 20150324
  8. LOVAZA [Concomitant]
     Active Substance: OMEGA-3-ACID ETHYL ESTERS
  9. PREVACID [Concomitant]
     Active Substance: LANSOPRAZOLE
  10. ZANTAC [Concomitant]
     Active Substance: RANITIDINE HYDROCHLORIDE

REACTIONS (4)
  - Incorrect dose administered [Not Recovered/Not Resolved]
  - Sinusitis [Unknown]
  - Off label use [Not Recovered/Not Resolved]
  - Chronic sinusitis [Not Recovered/Not Resolved]

NARRATIVE: CASE EVENT DATE: 20150324
